FAERS Safety Report 16464956 (Version 1)
Quarter: 2019Q2

REPORT INFORMATION
  Report Type: Spontaneous
  Country: US (occurrence: US)
  Receive Date: 20190621
  Receipt Date: 20190621
  Transmission Date: 20190711
  Serious: No
  Sender: FDA-Public Use
  Company Number: US-TEVA-2019-US-1054766

PATIENT
  Age: 68 Year
  Sex: Male

DRUGS (1)
  1. TRAZODONE HYDROCHLORIDE. [Suspect]
     Active Substance: TRAZODONE HYDROCHLORIDE
     Indication: DEPRESSION
     Route: 048
     Dates: start: 20190515

REACTIONS (8)
  - Insomnia [Unknown]
  - Dizziness [Unknown]
  - Product physical issue [Unknown]
  - Irritability [Unknown]
  - Headache [Unknown]
  - Drug ineffective [Unknown]
  - Tinnitus [Unknown]
  - Balance disorder [Unknown]

NARRATIVE: CASE EVENT DATE: 20190516
